FAERS Safety Report 18425048 (Version 1)
Quarter: 2020Q4

REPORT INFORMATION
  Report Type: Spontaneous
  Country: CA (occurrence: CA)
  Receive Date: 20201026
  Receipt Date: 20201026
  Transmission Date: 20210114
  Serious: Yes (Other)
  Sender: FDA-Public Use
  Company Number: CA-GP-PHARM S.A.-2093107

PATIENT
  Sex: Female

DRUGS (4)
  1. LUTRATE DEPOT [Suspect]
     Active Substance: LEUPROLIDE ACETATE
     Indication: MENORRHAGIA
     Route: 030
  2. NAPROXEN. [Suspect]
     Active Substance: NAPROXEN
     Route: 065
  3. CLONAZEPAM. [Suspect]
     Active Substance: CLONAZEPAM
     Route: 065
  4. PAROXETINE. [Suspect]
     Active Substance: PAROXETINE
     Route: 065

REACTIONS (17)
  - Feeling abnormal [Unknown]
  - Depressed mood [Unknown]
  - Nervousness [Unknown]
  - Amnesia [Unknown]
  - Depression [Unknown]
  - Fatigue [Unknown]
  - Hot flush [Unknown]
  - Insomnia [Unknown]
  - Muscle spasms [Unknown]
  - Hyperhidrosis [Unknown]
  - Nausea [Unknown]
  - Vision blurred [Unknown]
  - Off label use [Unknown]
  - Anger [Unknown]
  - Suicide attempt [Unknown]
  - Constipation [Unknown]
  - Loss of personal independence in daily activities [Unknown]
